FAERS Safety Report 13680846 (Version 2)
Quarter: 2017Q3

REPORT INFORMATION
  Report Type: Report from Study
  Country: SG (occurrence: SG)
  Receive Date: 20170623
  Receipt Date: 20170719
  Transmission Date: 20171127
  Serious: Yes (Death, Hospitalization)
  Sender: FDA-Public Use
  Company Number: SG-ASTRAZENECA-2016SE80683

PATIENT
  Age: 24901 Day
  Sex: Female

DRUGS (49)
  1. MEDI4736 [Suspect]
     Active Substance: DURVALUMAB
     Indication: NON-SMALL CELL LUNG CANCER
     Dosage: 789.0MG ONCE/SINGLE ADMINISTRATION
     Route: 042
     Dates: start: 20160317, end: 20160317
  2. OMEGA-3 ACIDS [Concomitant]
     Active Substance: OMEGA-3 FATTY ACIDS
     Indication: NUTRITIONAL SUPPLEMENTATION
     Dosage: QD
     Route: 048
     Dates: end: 20160701
  3. SIMVASTATIN. [Concomitant]
     Active Substance: SIMVASTATIN
     Indication: HYPERLIPIDAEMIA
     Route: 048
     Dates: end: 20160723
  4. METOCLOPRAMIDE. [Concomitant]
     Active Substance: METOCLOPRAMIDE
     Indication: COLITIS
     Dosage: 10.0MG ONCE/SINGLE ADMINISTRATION
     Route: 042
     Dates: start: 20160702, end: 20160702
  5. KETOPROFEN. [Concomitant]
     Active Substance: KETOPROFEN
     Indication: PAIN PROPHYLAXIS
     Dosage: 30.0MG AS REQUIRED
     Route: 003
     Dates: start: 20160703, end: 20160708
  6. MEDI4736 [Suspect]
     Active Substance: DURVALUMAB
     Indication: NON-SMALL CELL LUNG CANCER
     Dosage: 789.0MG ONCE/SINGLE ADMINISTRATION
     Route: 042
     Dates: start: 20160608, end: 20160608
  7. ENOXAPARIN SODIUM. [Concomitant]
     Active Substance: ENOXAPARIN SODIUM
     Indication: ATRIAL FIBRILLATION
     Route: 058
     Dates: start: 20160706, end: 20160812
  8. AMLODIPINE [Concomitant]
     Active Substance: AMLODIPINE BESYLATE
     Indication: HYPERTENSION
     Route: 048
     Dates: end: 20160708
  9. BISOPROLOL FUMARATE. [Concomitant]
     Active Substance: BISOPROLOL FUMARATE
     Indication: HYPERTENSION
     Route: 048
     Dates: start: 20160719, end: 20160719
  10. SODIUM CHLORIDE. [Concomitant]
     Active Substance: SODIUM CHLORIDE
     Indication: DEHYDRATION
     Dosage: 1500.0ML ONCE/SINGLE ADMINISTRATION
     Route: 042
     Dates: start: 20160703, end: 20160703
  11. KETOPROFEN. [Concomitant]
     Active Substance: KETOPROFEN
     Indication: PAIN PROPHYLAXIS
     Dosage: AS REQUIRED
     Route: 003
     Dates: start: 20160717, end: 20160719
  12. REHYDRATION SALTS [Concomitant]
     Indication: PROPHYLAXIS AGAINST DEHYDRATION
     Dosage: 1 SACHET THREE TIMES A DAY
     Route: 048
     Dates: start: 20160703, end: 20160707
  13. MEDI4736 [Suspect]
     Active Substance: DURVALUMAB
     Indication: NON-SMALL CELL LUNG CANCER
     Dosage: 789.0MG ONCE/SINGLE ADMINISTRATION
     Route: 042
     Dates: start: 20160302, end: 20160302
  14. MEDI4736 [Suspect]
     Active Substance: DURVALUMAB
     Indication: NON-SMALL CELL LUNG CANCER
     Dosage: 789.0MG ONCE/SINGLE ADMINISTRATION
     Route: 042
     Dates: start: 20160412, end: 20160412
  15. AMLODIPINE [Concomitant]
     Active Substance: AMLODIPINE BESYLATE
     Indication: HYPERTENSION
     Route: 048
     Dates: start: 20160714, end: 20160719
  16. BISOPROLOL FUMARATE. [Concomitant]
     Active Substance: BISOPROLOL FUMARATE
     Indication: HYPERTENSION
     Route: 048
     Dates: start: 20160708, end: 20160717
  17. BISOPROLOL FUMARATE. [Concomitant]
     Active Substance: BISOPROLOL FUMARATE
     Indication: HYPERTENSION
     Route: 048
     Dates: start: 20160718, end: 20160718
  18. SODIUM CHLORIDE. [Concomitant]
     Active Substance: SODIUM CHLORIDE
     Indication: DEHYDRATION
     Dosage: 2.0L ONCE/SINGLE ADMINISTRATION
     Route: 042
     Dates: start: 20160702, end: 20160702
  19. SODIUM CHLORIDE. [Concomitant]
     Active Substance: SODIUM CHLORIDE
     Indication: DEHYDRATION
     Dosage: 1500.0ML ONCE/SINGLE ADMINISTRATION
     Route: 042
     Dates: start: 20160705, end: 20160706
  20. MEDI4736 [Suspect]
     Active Substance: DURVALUMAB
     Indication: NON-SMALL CELL LUNG CANCER
     Dosage: 789.0MG ONCE/SINGLE ADMINISTRATION
     Route: 042
     Dates: start: 20160216, end: 20160216
  21. MEDI4736 [Suspect]
     Active Substance: DURVALUMAB
     Indication: NON-SMALL CELL LUNG CANCER
     Dosage: 789.0MG ONCE/SINGLE ADMINISTRATION
     Route: 042
     Dates: start: 20160524, end: 20160524
  22. MEDI4736 [Suspect]
     Active Substance: DURVALUMAB
     Indication: NON-SMALL CELL LUNG CANCER
     Dosage: ONCE/SINGLE ADMINISTRATION
     Route: 042
     Dates: end: 20160621
  23. ENOXAPARIN SODIUM. [Concomitant]
     Active Substance: ENOXAPARIN SODIUM
     Indication: ATRIAL FIBRILLATION
     Route: 058
     Dates: start: 20160703, end: 20160705
  24. SODIUM CHLORIDE. [Concomitant]
     Active Substance: SODIUM CHLORIDE
     Indication: DEHYDRATION
     Dosage: 2000.0ML ONCE/SINGLE ADMINISTRATION
     Route: 042
     Dates: start: 20160704, end: 20160704
  25. MAGNESIUM [Concomitant]
     Active Substance: MAGNESIUM
     Indication: BLOOD MAGNESIUM DECREASED
     Route: 048
     Dates: start: 20160707, end: 20160708
  26. PARACETAMOL [Concomitant]
     Active Substance: ACETAMINOPHEN
     Indication: MYALGIA
     Dosage: 1.0G AS REQUIRED
     Route: 048
     Dates: start: 20160702, end: 20160708
  27. MEDI4736 [Suspect]
     Active Substance: DURVALUMAB
     Indication: NON-SMALL CELL LUNG CANCER
     Dosage: 789.0MG ONCE/SINGLE ADMINISTRATION
     Route: 042
     Dates: start: 20160329, end: 20160329
  28. MEDI4736 [Suspect]
     Active Substance: DURVALUMAB
     Indication: NON-SMALL CELL LUNG CANCER
     Dosage: 789.0MG ONCE/SINGLE ADMINISTRATION
     Route: 042
     Dates: start: 20160510, end: 20160510
  29. BISOPROLOL FUMARATE. [Concomitant]
     Active Substance: BISOPROLOL FUMARATE
     Indication: HYPERTENSION
     Dosage: 2.5MG ONCE/SINGLE ADMINISTRATION
     Route: 048
     Dates: start: 20160720, end: 20160722
  30. SIMETHICONE (DIMETHICONE) [Concomitant]
     Active Substance: DIMETHICONE
     Indication: COLITIS
     Route: 048
     Dates: start: 20160711, end: 20160714
  31. SODIUM CHLORIDE. [Concomitant]
     Active Substance: SODIUM CHLORIDE
     Indication: DEHYDRATION
     Dosage: 1000.0ML ONCE/SINGLE ADMINISTRATION
     Route: 042
     Dates: start: 20160707, end: 20160707
  32. CIPROFLOXACIN. [Concomitant]
     Active Substance: CIPROFLOXACIN
     Indication: ANTIBIOTIC THERAPY
     Route: 042
     Dates: start: 20160702, end: 20160705
  33. PARACETAMOL [Concomitant]
     Active Substance: ACETAMINOPHEN
     Indication: PROPHYLAXIS
     Dosage: 1.0G AS REQUIRED
     Route: 048
     Dates: start: 20160702, end: 20160708
  34. LOMOTIL [Concomitant]
     Active Substance: ATROPINE SULFATE\DIPHENOXYLATE HYDROCHLORIDE
     Indication: COLITIS
     Route: 048
     Dates: start: 20160711, end: 20160714
  35. SODIUM CHLORIDE. [Concomitant]
     Active Substance: SODIUM CHLORIDE
     Indication: DEHYDRATION
     Dosage: 1.5L ONCE/SINGLE ADMINISTRATION
     Route: 042
     Dates: start: 20160714, end: 20160809
  36. MEDI4736 [Suspect]
     Active Substance: DURVALUMAB
     Indication: NON-SMALL CELL LUNG CANCER
     Dosage: 789.0MG ONCE/SINGLE ADMINISTRATION
     Route: 042
     Dates: start: 20160426, end: 20160426
  37. VITAMIN D3 [Concomitant]
     Active Substance: CHOLECALCIFEROL
     Indication: VITAMIN SUPPLEMENTATION
     Route: 048
     Dates: end: 20160701
  38. BLACKMORE HEALTH SUPPLEMENTS [Concomitant]
     Indication: NUTRITIONAL SUPPLEMENTATION
     Dosage: QD
     Route: 048
     Dates: end: 20160701
  39. BISOPROLOL FUMARATE. [Concomitant]
     Active Substance: BISOPROLOL FUMARATE
     Indication: HYPERTENSION
     Route: 048
     Dates: end: 20160706
  40. PANADOL [Concomitant]
     Active Substance: ACETAMINOPHEN
     Indication: MYALGIA
     Dosage: 1000.0MG AS REQUIRED
     Route: 048
     Dates: start: 20160303, end: 20160510
  41. PANADOL [Concomitant]
     Active Substance: ACETAMINOPHEN
     Indication: UPPER RESPIRATORY TRACT INFECTION
     Dosage: 1000.0MG AS REQUIRED
     Route: 048
     Dates: start: 20160303, end: 20160510
  42. MAGNESIUM TRISILICATE MIXTURE [Concomitant]
     Indication: PROPHYLAXIS AGAINST DEHYDRATION
     Dosage: 10.0ML ONCE/SINGLE ADMINISTRATION
     Route: 048
     Dates: start: 20160703, end: 20160704
  43. ENOXAPARIN SODIUM. [Concomitant]
     Active Substance: ENOXAPARIN SODIUM
     Indication: ATRIAL FIBRILLATION
     Route: 058
     Dates: end: 20160702
  44. CANDESARTAN CILEXETIL. [Concomitant]
     Active Substance: CANDESARTAN CILEXETIL
     Indication: HYPERTENSION
     Route: 048
     Dates: end: 20160708
  45. CANDESARTAN CILEXETIL. [Concomitant]
     Active Substance: CANDESARTAN CILEXETIL
     Indication: HYPERTENSION
     Route: 048
     Dates: start: 20160714, end: 20160719
  46. PANADOL [Concomitant]
     Active Substance: ACETAMINOPHEN
     Indication: MYALGIA
     Dosage: 1000.0MG AS REQUIRED
     Route: 048
     Dates: start: 20160618, end: 20160702
  47. PANADOL [Concomitant]
     Active Substance: ACETAMINOPHEN
     Indication: UPPER RESPIRATORY TRACT INFECTION
     Dosage: 1000.0MG AS REQUIRED
     Route: 048
     Dates: start: 20160618, end: 20160702
  48. LACTOMIN [Concomitant]
     Active Substance: LACTOBACILLUS ACIDOPHILUS
     Indication: PROPHYLAXIS
     Dosage: 1 SACHET TID
     Route: 048
     Dates: start: 20160711, end: 20160714
  49. PROBIOTICS 112.5 BILLION [Concomitant]
     Indication: COLITIS
     Route: 048
     Dates: start: 20160703, end: 20160708

REACTIONS (1)
  - Glucocorticoid deficiency [Not Recovered/Not Resolved]

NARRATIVE: CASE EVENT DATE: 20160714
